FAERS Safety Report 10180244 (Version 1)
Quarter: 2014Q2

REPORT INFORMATION
  Report Type: Spontaneous
  Country: US (occurrence: US)
  Receive Date: 20140519
  Receipt Date: 20140519
  Transmission Date: 20141212
  Serious: No
  Sender: FDA-Public Use
  Company Number: US-AMGEN INC.-USASP2013087275

PATIENT
  Age: 72 Year
  Sex: Female

DRUGS (7)
  1. PROLIA [Suspect]
     Indication: OSTEOPOROSIS
     Dosage: UNK
     Route: 065
     Dates: start: 20131028
  2. OMEPRAZOLE [Concomitant]
  3. VITAMIN D                          /00107901/ [Concomitant]
  4. VITAMIN K2                         /00357701/ [Concomitant]
  5. CALCIUM [Concomitant]
     Dosage: 500 MG, BID
  6. CINNAMON                           /01647501/ [Concomitant]
     Indication: DIABETES MELLITUS
  7. COQ10                              /00517201/ [Concomitant]

REACTIONS (5)
  - Onychoclasis [Unknown]
  - Tooth fracture [Unknown]
  - Skin exfoliation [Unknown]
  - Nail disorder [Unknown]
  - Sensitivity of teeth [Unknown]
